FAERS Safety Report 4844374-6 (Version None)
Quarter: 2005Q4

REPORT INFORMATION
  Report Type: 
  Country: None (occurrence: None)
  Receive Date: 20051202
  Receipt Date: 20051123
  Transmission Date: 20060501
  Serious: Yes (Hospitalization)
  Sender: FDA-Public Use
  Company Number: US-MERCK-0511USA04128

PATIENT
  Age: 71 Year
  Sex: Male
  Weight: 93 kg

DRUGS (8)
  1. VIOXX [Suspect]
     Indication: RHEUMATOID ARTHRITIS
     Route: 048
     Dates: start: 20020906, end: 20040812
  2. METHOTREXATE [Concomitant]
     Route: 065
  3. HYDROXYCHLOROQUINE SULFATE [Concomitant]
     Route: 065
  4. FOLIC ACID [Concomitant]
     Route: 065
  5. ALTACE [Concomitant]
     Route: 065
  6. METFORMIN [Concomitant]
     Route: 065
  7. ZOCOR [Concomitant]
     Route: 065
  8. AMARYL [Concomitant]
     Route: 065

REACTIONS (2)
  - KNEE ARTHROPLASTY [None]
  - MYOCARDIAL INFARCTION [None]
